FAERS Safety Report 10162970 (Version 6)
Quarter: 2014Q3

REPORT INFORMATION
  Report Type: Spontaneous
  Country: US (occurrence: US)
  Receive Date: 20140509
  Receipt Date: 20140707
  Transmission Date: 20150326
  Serious: Yes (Other)
  Sender: FDA-Public Use
  Company Number: US-PFIZER INC-2014125551

PATIENT
  Age: 75 Year
  Sex: Male
  Weight: 85.26 kg

DRUGS (12)
  1. LYRICA [Suspect]
     Active Substance: PREGABALIN
     Dosage: 450 MG (6 CAPSULES OF 75MG), 1X/DAY
     Route: 048
     Dates: start: 2014, end: 2014
  2. LYRICA [Suspect]
     Active Substance: PREGABALIN
     Dosage: 300 MG (4 CAPSULES OF 75MG), 1X/DAY
     Route: 048
     Dates: start: 201405, end: 201405
  3. LYRICA [Suspect]
     Active Substance: PREGABALIN
     Dosage: 225 MG DAILY (150 MG FOR ONE DOSE AND 75 MG FOR THE OTHER)
     Route: 048
     Dates: start: 201405, end: 2014
  4. LYRICA [Suspect]
     Active Substance: PREGABALIN
     Indication: NEUROPATHY PERIPHERAL
     Dosage: 150 MG (2 CAPSULES OF 75 MG, 1X/DAY
     Route: 048
     Dates: start: 20140505, end: 201405
  5. LYRICA [Suspect]
     Active Substance: PREGABALIN
     Dosage: UNK
     Route: 048
  6. DIAZEPAM. [Concomitant]
     Active Substance: DIAZEPAM
     Dosage: UNK, (2.5MG IN MORNING AND 5MG AT BED TIME)
  7. LYRICA [Suspect]
     Active Substance: PREGABALIN
     Dosage: 675 MG, DAILY
     Route: 048
  8. DILTIAZEM [Concomitant]
     Active Substance: DILTIAZEM
     Indication: CARDIAC DISORDER
     Dosage: 180 MG, DAILY
  9. LYRICA [Suspect]
     Active Substance: PREGABALIN
     Dosage: 450 MG, DAILY
     Route: 048
  10. LYRICA [Suspect]
     Active Substance: PREGABALIN
     Dosage: UNK
     Route: 048
  11. AMBIEN [Concomitant]
     Active Substance: ZOLPIDEM TARTRATE
     Indication: SLEEP DISORDER
     Dosage: 10 MG, DAILY
  12. DIAZEPAM. [Concomitant]
     Active Substance: DIAZEPAM
     Indication: ANXIETY
     Dosage: 5 MG, 1X/DAY
     Route: 048

REACTIONS (6)
  - Drug ineffective [Unknown]
  - Coronary artery thrombosis [Unknown]
  - Dizziness [Unknown]
  - Tremor [Unknown]
  - Vision blurred [Unknown]
  - Diplopia [Unknown]

NARRATIVE: CASE EVENT DATE: 2014
